FAERS Safety Report 9060947 (Version 1)
Quarter: 2013Q1

REPORT INFORMATION
  Report Type: Spontaneous
  Country: US (occurrence: US)
  Receive Date: 20130213
  Receipt Date: 20130213
  Transmission Date: 20140127
  Serious: No
  Sender: FDA-Public Use
  Company Number: US-009507513-1301USA011641

PATIENT
  Age: 48 None
  Sex: Male

DRUGS (5)
  1. INVANZ [Suspect]
     Indication: DIVERTICULITIS
     Dosage: UNK
     Dates: start: 20130117
  2. CIPRO [Concomitant]
  3. FLAGYL [Concomitant]
  4. TRAZODONE HYDROCHLORIDE [Concomitant]
  5. DILAUDID [Concomitant]

REACTIONS (5)
  - Night sweats [Unknown]
  - Dizziness [Unknown]
  - Rash generalised [Recovered/Resolved]
  - Skin odour abnormal [Unknown]
  - Hyperhidrosis [Unknown]
